FAERS Safety Report 6885132-0 (Version None)
Quarter: 2010Q3

REPORT INFORMATION
  Report Type: 
  Country: None (occurrence: None)
  Receive Date: 20100729
  Receipt Date: 20071224
  Transmission Date: 20110219
  Serious: No
  Sender: FDA-Public Use
  Company Number: US-PFIZER INC-2007106947

PATIENT
  Sex: Female
  Weight: 122.72 kg

DRUGS (2)
  1. CORTEF [Suspect]
     Indication: ADRENAL INSUFFICIENCY
  2. INSULIN [Concomitant]
     Indication: DIABETES MELLITUS

REACTIONS (1)
  - DRUG INEFFECTIVE [None]
